FAERS Safety Report 10267132 (Version 1)
Quarter: 2014Q2

REPORT INFORMATION
  Report Type: Spontaneous
  Country: ES (occurrence: ES)
  Receive Date: 20140630
  Receipt Date: 20140630
  Transmission Date: 20141212
  Serious: No
  Sender: FDA-Public Use
  Company Number: ES-JNJFOC-20140611552

PATIENT
  Age: 65 Year
  Sex: Female

DRUGS (2)
  1. DUROGESIC [Suspect]
     Indication: PAIN
     Route: 062
     Dates: start: 201406
  2. DUROGESIC [Suspect]
     Indication: PAIN
     Dosage: 25 UG/HR + HALF A PATCH OF 25 UG/HR
     Route: 062
     Dates: start: 201406

REACTIONS (3)
  - Drug ineffective [Unknown]
  - Drug prescribing error [Unknown]
  - Wrong technique in drug usage process [Unknown]
